FAERS Safety Report 6474311-2 (Version None)
Quarter: 2009Q4

REPORT INFORMATION
  Report Type: 
  Country: None (occurrence: None)
  Receive Date: 20091204
  Receipt Date: 20091202
  Transmission Date: 20100525
  Serious: Yes (Death)
  Sender: FDA-Public Use
  Company Number: PHEH2009US15653

PATIENT
  Sex: Male

DRUGS (1)
  1. EXJADE [Suspect]
     Dosage: 2000 UNK, QD
     Route: 048
     Dates: start: 20071126, end: 20090219

REACTIONS (2)
  - PANCYTOPENIA [None]
  - PNEUMONIA [None]
